FAERS Safety Report 5714613-8 (Version None)
Quarter: 2008Q2

REPORT INFORMATION
  Report Type: 
  Country: None (occurrence: None)
  Receive Date: 20080423
  Receipt Date: 20080416
  Transmission Date: 20081010
  Serious: Yes (Life-Threatening, Hospitalization)
  Sender: FDA-Public Use
  Company Number: B0490537A

PATIENT
  Age: 22 Year
  Sex: Female

DRUGS (2)
  1. ALBENDAZOLE [Suspect]
     Dosage: 1TAB SINGLE DOSE
     Route: 048
     Dates: start: 20070624, end: 20070624
  2. DIETHYLCARBAMAZINE CITRATE [Suspect]
     Dosage: 2TAB SINGLE DOSE
     Route: 048
     Dates: start: 20070624, end: 20070624

REACTIONS (8)
  - ABDOMINAL PAIN [None]
  - ABDOMINAL TENDERNESS [None]
  - ABORTION SPONTANEOUS [None]
  - ASTHENIA [None]
  - DRUG EXPOSURE DURING PREGNANCY [None]
  - LETHARGY [None]
  - PALLOR [None]
  - VAGINAL HAEMORRHAGE [None]
